FAERS Safety Report 8612825 (Version 2)
Quarter: 2013Q4

REPORT INFORMATION
  Report Type: Spontaneous
  Country: US (occurrence: US)
  Receive Date: 20120613
  Receipt Date: 20131002
  Transmission Date: 20140711
  Serious: Yes (Congenital Anomaly, Other)
  Sender: FDA-Public Use
  Company Number: US-PFIZER INC-2012139945

PATIENT
  Sex: Male

DRUGS (3)
  1. ZOLOFT [Suspect]
     Dosage: UNK
     Route: 064
     Dates: start: 2003, end: 2012
  2. PRENATAL VITAMINS [Concomitant]
     Dosage: UNK
     Route: 064
  3. TYLENOL [Concomitant]
     Dosage: UNK
     Route: 064

REACTIONS (13)
  - Maternal exposure timing unspecified [Unknown]
  - Renal aplasia [Unknown]
  - Congenital inguinal hernia [Unknown]
  - Plagiocephaly [Unknown]
  - Brachycephaly [Unknown]
  - Atrial septal defect [Unknown]
  - Congenital scoliosis [Unknown]
  - Pterygium colli [Unknown]
  - Torticollis [Unknown]
  - Otitis media [Unknown]
  - Developmental delay [Unknown]
  - Bronchial hyperreactivity [Unknown]
  - Premature baby [Unknown]
